FAERS Safety Report 8260674 (Version 11)
Quarter: 2014Q2

REPORT INFORMATION
  Report Type: Spontaneous
  Country: US (occurrence: US)
  Receive Date: 20111123
  Receipt Date: 20140403
  Transmission Date: 20141212
  Serious: Yes (Hospitalization, Congenital Anomaly, Other)
  Sender: FDA-Public Use
  Company Number: US-JNJFOC-20111109043

PATIENT
  Age: 0 Day
  Sex: Female

DRUGS (10)
  1. TOPAMAX [Suspect]
     Indication: FOETAL EXPOSURE DURING PREGNANCY
     Route: 064
     Dates: start: 2001, end: 2007
  2. CLINDAMYCIN [Suspect]
     Indication: FOETAL EXPOSURE DURING PREGNANCY
     Route: 064
  3. TERBUTALINE [Suspect]
     Indication: FOETAL EXPOSURE DURING PREGNANCY
     Route: 064
  4. PROMETRIUM [Suspect]
     Indication: FOETAL EXPOSURE DURING PREGNANCY
     Route: 064
  5. LEXAPRO [Suspect]
     Indication: FOETAL EXPOSURE DURING PREGNANCY
     Route: 064
  6. LITHIUM CARBONATE [Suspect]
     Indication: FOETAL EXPOSURE DURING PREGNANCY
     Route: 064
  7. ZITHROMAX [Suspect]
     Indication: FOETAL EXPOSURE DURING PREGNANCY
     Route: 064
  8. BETAMETHASONE [Suspect]
     Indication: FOETAL EXPOSURE DURING PREGNANCY
     Route: 064
  9. NIFEDIPINE [Suspect]
     Indication: FOETAL EXPOSURE DURING PREGNANCY
     Route: 064
  10. AMPICILLIN [Suspect]
     Indication: FOETAL EXPOSURE DURING PREGNANCY
     Route: 064

REACTIONS (23)
  - Meningitis neonatal [Unknown]
  - Pharyngotonsillitis [Unknown]
  - Abnormal behaviour [Not Recovered/Not Resolved]
  - Bronchopulmonary dysplasia [Recovered/Resolved]
  - Strabismus [Unknown]
  - Sepsis [Recovered/Resolved]
  - Congenital central nervous system anomaly [Unknown]
  - Premature baby [Not Recovered/Not Resolved]
  - Developmental delay [Recovering/Resolving]
  - Enlarged clitoris [Unknown]
  - Patent ductus arteriosus [Recovered/Resolved]
  - Malocclusion [Unknown]
  - Nasal septum deviation [Unknown]
  - Sleep apnoea syndrome [Unknown]
  - Attention deficit/hyperactivity disorder [Unknown]
  - Emotional disorder [Unknown]
  - Cleft lip and palate [Recovering/Resolving]
  - Intraventricular haemorrhage neonatal [Recovered/Resolved]
  - Lung disorder [Unknown]
  - Retinopathy of prematurity [Unknown]
  - Gastrooesophageal reflux disease [Unknown]
  - Apgar score low [Unknown]
  - Asthma [Unknown]
